FAERS Safety Report 6510057-X (Version None)
Quarter: 2009Q4

REPORT INFORMATION
  Report Type: 
  Country: None (occurrence: None)
  Receive Date: 20091222
  Receipt Date: 20090904
  Transmission Date: 20100525
  Serious: No
  Sender: FDA-Public Use
  Company Number: US-BAUSCH-2009BL004506

PATIENT
  Age: 69 Year
  Sex: Female

DRUGS (3)
  1. BESIVANCE [Suspect]
     Indication: REMOVAL OF FOREIGN BODY FROM EYE
     Route: 047
     Dates: start: 20090902, end: 20090903
  2. BESIVANCE [Suspect]
     Indication: OFF LABEL USE
     Route: 047
     Dates: start: 20090902, end: 20090903
  3. PRED FORTE [Concomitant]
     Indication: CATARACT OPERATION COMPLICATION
     Route: 047
     Dates: start: 20070101

REACTIONS (2)
  - ABNORMAL SENSATION IN EYE [None]
  - EYE IRRITATION [None]
